FAERS Safety Report 5869270-7 (Version None)
Quarter: 2008Q3

REPORT INFORMATION
  Report Type: 
  Country: None (occurrence: None)
  Receive Date: 20080828
  Receipt Date: 20080820
  Transmission Date: 20090109
  Serious: Yes (Hospitalization, Other)
  Sender: FDA-Public Use
  Company Number: 2008AL008280

PATIENT
  Age: 84 Year
  Sex: Male
  Weight: 149 kg

DRUGS (11)
  1. DIGOXIN [Suspect]
     Indication: ATRIAL FIBRILLATION
     Dosage: 0.125MG DAILY PO; FOR YEARS
     Route: 048
  2. LASIX [Concomitant]
  3. XANAX [Concomitant]
  4. COUMADIN [Concomitant]
  5. PEPCID [Concomitant]
  6. COZAAR [Concomitant]
  7. NASONEX [Concomitant]
  8. ZOSYN [Concomitant]
  9. DILAUDID [Concomitant]
  10. ZOFRAN [Concomitant]
  11. AMIODARONE HCL [Concomitant]

REACTIONS (11)
  - BACK PAIN [None]
  - DYSPNOEA [None]
  - FATIGUE [None]
  - HEADACHE [None]
  - INCORRECT DOSE ADMINISTERED [None]
  - MUSCLE SPASMS [None]
  - MUSCULOSKELETAL STIFFNESS [None]
  - OEDEMA PERIPHERAL [None]
  - PANCREATITIS [None]
  - URINE ANALYSIS ABNORMAL [None]
  - WEIGHT DECREASED [None]
